FAERS Safety Report 15987613 (Version 1)
Quarter: 2019Q1

REPORT INFORMATION
  Report Type: Spontaneous
  Country: ES (occurrence: ES)
  Receive Date: 20190220
  Receipt Date: 20190220
  Transmission Date: 20190418
  Serious: Yes (Hospitalization, Other)
  Sender: FDA-Public Use
  Company Number: PHHY2019ES038401

PATIENT
  Age: 53 Year
  Sex: Male

DRUGS (1)
  1. GILENYA [Suspect]
     Active Substance: FINGOLIMOD HYDROCHLORIDE
     Indication: MULTIPLE SCLEROSIS RELAPSE
     Dosage: UNK
     Route: 065

REACTIONS (7)
  - Asthenia [Unknown]
  - Malaise [Unknown]
  - Pyrexia [Unknown]
  - Multiple sclerosis relapse [Unknown]
  - Erdheim-Chester disease [Unknown]
  - Arthralgia [Unknown]
  - Muscular weakness [Not Recovered/Not Resolved]
